FAERS Safety Report 17812469 (Version 3)
Quarter: 2020Q3

REPORT INFORMATION
  Report Type: Spontaneous
  Country: PL (occurrence: PL)
  Receive Date: 20200521
  Receipt Date: 20200730
  Transmission Date: 20201102
  Serious: Yes (Hospitalization, Other)
  Sender: FDA-Public Use
  Company Number: PL-PFIZER INC-2020199317

PATIENT
  Age: 63 Year
  Sex: Male

DRUGS (5)
  1. RED BLOOD CELLS [Concomitant]
     Active Substance: HUMAN RED BLOOD CELL
     Indication: ANAEMIA
     Dosage: 2 UNITS, QD
     Route: 042
     Dates: start: 20200409, end: 20200409
  2. CARBOPLATIN. [Suspect]
     Active Substance: CARBOPLATIN
     Indication: LUNG ADENOCARCINOMA STAGE IV
     Dosage: AUC OF 5 MG/ML/MIN, Q3W; SOLUTION FOR INFUSION, EVERY 3 WEEKS
     Route: 042
     Dates: start: 20191219, end: 20200214
  3. CEMIPLIMAB [Suspect]
     Active Substance: CEMIPLIMAB
     Indication: LUNG ADENOCARCINOMA STAGE IV
     Dosage: 350 MG, EVERY 3 WEEKS (Q3W)
     Route: 042
     Dates: start: 20191219, end: 20200214
  4. PEMETREXED DISODIUM [Suspect]
     Active Substance: PEMETREXED DISODIUM
     Indication: LUNG ADENOCARCINOMA STAGE IV
     Dosage: 500 MG/M2, EVERY 3 WEEKS (Q3W)
     Route: 042
     Dates: start: 20191219, end: 20200214
  5. KETOPROFEN. [Concomitant]
     Active Substance: KETOPROFEN
     Indication: ABDOMINAL PAIN UPPER
     Dosage: 100 MG, AS NEEDED ( AS NECESSARY)
     Route: 048
     Dates: start: 201912

REACTIONS (2)
  - Tuberculosis [Recovering/Resolving]
  - Pneumonia serratia [Recovered/Resolved]

NARRATIVE: CASE EVENT DATE: 20200416
